FAERS Safety Report 7064455-9 (Version None)
Quarter: 2010Q4

REPORT INFORMATION
  Report Type: 
  Country: None (occurrence: None)
  Receive Date: 20101027
  Receipt Date: 20101021
  Transmission Date: 20110411
  Serious: Yes (Other)
  Sender: FDA-Public Use
  Company Number: US-PFIZER INC-2010134869

PATIENT
  Sex: Female
  Weight: 63.492 kg

DRUGS (2)
  1. CHANTIX [Suspect]
     Indication: SMOKING CESSATION THERAPY
     Dosage: 0.5 MG, 1X/DAY
     Route: 048
     Dates: start: 20101001, end: 20101020
  2. DILANTIN [Concomitant]
     Dosage: UNK

REACTIONS (3)
  - AGGRESSION [None]
  - DEPRESSION [None]
  - FEELING ABNORMAL [None]
